FAERS Safety Report 25763824 (Version 1)
Quarter: 2025Q3

REPORT INFORMATION
  Report Type: Spontaneous
  Country: US (occurrence: US)
  Receive Date: 20250905
  Receipt Date: 20250905
  Transmission Date: 20251021
  Serious: No
  Sender: DOMPE FARMACEUTICI
  Company Number: US-FARMAPROD-202411-3980

PATIENT
  Sex: Female

DRUGS (11)
  1. OXERVATE [Suspect]
     Active Substance: CENEGERMIN-BKBJ
     Indication: Neurotrophic keratopathy
     Route: 047
     Dates: start: 20241107
  2. LISINOPRIL [Concomitant]
     Active Substance: LISINOPRIL
  3. VITAMIN D-400 [Concomitant]
  4. METFORMIN HYDROCHLORIDE [Concomitant]
     Active Substance: METFORMIN HYDROCHLORIDE
  5. CALCIUM CITRATE - VITAMIN D [Concomitant]
  6. MULTIVITAMIN 50 PLUS [Concomitant]
  7. ESCITALOPRAM OXALATE [Concomitant]
     Active Substance: ESCITALOPRAM OXALATE
  8. PROPRANOLOL HCL ER [Concomitant]
  9. ATORVASTATIN CALCIUM [Concomitant]
     Active Substance: ATORVASTATIN CALCIUM
  10. CEQUA [Concomitant]
     Active Substance: CYCLOSPORINE
  11. IVIZIA [Concomitant]
     Active Substance: POVIDONE

REACTIONS (3)
  - Eye pain [Unknown]
  - Product dose omission issue [Unknown]
  - Product administration error [Unknown]
